FAERS Safety Report 6067900-0 (Version None)
Quarter: 2009Q1

REPORT INFORMATION
  Report Type: 
  Country: None (occurrence: None)
  Receive Date: 20090203
  Receipt Date: 20081210
  Transmission Date: 20090719
  Serious: Yes (Hospitalization, Other)
  Sender: FDA-Public Use
  Company Number: 09-005

PATIENT
  Age: 51 Year
  Sex: Female

DRUGS (8)
  1. CEFOXITIN [Suspect]
     Indication: LUNG ABSCESS
  2. CEFOXITIN [Suspect]
     Indication: MYCOBACTERIAL INFECTION
  3. AMIKACIN [Suspect]
     Indication: LUNG ABSCESS
  4. AMIKACIN [Suspect]
     Indication: MYCOBACTERIAL INFECTION
  5. CLARITHROMYCIN [Suspect]
     Indication: LUNG ABSCESS
  6. CLARITHROMYCIN [Suspect]
     Indication: MYCOBACTERIAL INFECTION
  7. CIPROFLOXACIN [Suspect]
     Indication: LUNG DISORDER
  8. CIPROFLOXACIN [Suspect]
     Indication: MYCOBACTERIAL INFECTION

REACTIONS (1)
  - LEUKOCYTOCLASTIC VASCULITIS [None]
